FAERS Safety Report 7294723-7 (Version None)
Quarter: 2011Q1

REPORT INFORMATION
  Report Type: 
  Country: None (occurrence: None)
  Receive Date: 20110203
  Receipt Date: 20110117
  Transmission Date: 20110831
  Serious: Yes (Other)
  Sender: FDA-Public Use
  Company Number: 005709

PATIENT
  Age: 57 Year
  Sex: Female

DRUGS (5)
  1. MULTI-VITAMINS [Concomitant]
  2. PROGESTERONE [Concomitant]
  3. CELEBREX [Concomitant]
  4. CIMZIA [Suspect]
     Indication: RHEUMATOID ARTHRITIS
     Dosage: (SUBCUTANEOUS)
     Route: 058
     Dates: start: 20100125, end: 20100125
  5. ESTRADIOL [Concomitant]

REACTIONS (2)
  - THROAT TIGHTNESS [None]
  - RASH GENERALISED [None]
